FAERS Safety Report 4619373-X (Version None)
Quarter: 2005Q2

REPORT INFORMATION
  Report Type: 
  Country: None (occurrence: None)
  Receive Date: 20050325
  Receipt Date: 20050211
  Transmission Date: 20051028
  Serious: Yes (Hospitalization)
  Sender: FDA-Public Use
  Company Number: 0205003

PATIENT
  Age: 69 Year
  Sex: Male

DRUGS (2)
  1. DEPODUR [Suspect]
     Indication: POST PROCEDURAL PAIN
     Dosage: (15 MG, ONCE), INTRATHECAL
     Route: 037
     Dates: start: 20050118, end: 20050118
  2. ATIVAN [Concomitant]

REACTIONS (4)
  - CONFUSIONAL STATE [None]
  - INSOMNIA [None]
  - RESPIRATORY DEPRESSION [None]
  - SOMNOLENCE [None]
